FAERS Safety Report 5022952-1 (Version None)
Quarter: 2006Q2

REPORT INFORMATION
  Report Type: 
  Country: None (occurrence: None)
  Receive Date: 20060426
  Receipt Date: 20060317
  Transmission Date: 20061013
  Serious: Yes (Other)
  Sender: FDA-Public Use
  Company Number: 2006038778

PATIENT
  Age: 76 Year
  Sex: Female

DRUGS (9)
  1. LYRICA [Suspect]
     Indication: POST HERPETIC NEURALGIA
     Dosage: 100 MG (100 MG, 1 IN 1 D), ORAL
     Route: 048
  2. MORPHINE [Suspect]
     Indication: POST HERPETIC NEURALGIA
  3. TOPAMAX [Suspect]
     Indication: POST HERPETIC NEURALGIA
     Dosage: ORAL
     Route: 048
     Dates: start: 20060101, end: 20060101
  4. HYDROCODONE BITARTRATE [Suspect]
     Indication: POST HERPETIC NEURALGIA
     Dosage: ORAL
     Route: 048
     Dates: start: 20060101, end: 20060101
  5. FOSAMAX [Concomitant]
  6. VITAMINS (VITAMINS) [Concomitant]
  7. LORAZEPAM [Concomitant]
  8. GABAPENTIN [Concomitant]
  9. BENICAR [Concomitant]

REACTIONS (6)
  - DIVERTICULITIS [None]
  - DRUG INEFFECTIVE [None]
  - FEELING ABNORMAL [None]
  - JOINT SWELLING [None]
  - STOMACH DISCOMFORT [None]
  - WEIGHT INCREASED [None]
